FAERS Safety Report 16233037 (Version 1)
Quarter: 2019Q2

REPORT INFORMATION
  Report Type: Spontaneous
  Country: US (occurrence: US)
  Receive Date: 20190423
  Receipt Date: 20190423
  Transmission Date: 20190711
  Serious: Yes (Disabling, Other)
  Sender: FDA-Public Use
  Company Number: None

PATIENT
  Age: 21 Year
  Sex: Male
  Weight: 67.5 kg

DRUGS (10)
  1. DULOXETINE. [Suspect]
     Active Substance: DULOXETINE
     Indication: ANXIETY
     Dates: start: 20170101, end: 20181210
  2. BUSPIRONE [Concomitant]
     Active Substance: BUSPIRONE HYDROCHLORIDE
  3. CLONOPYN [Concomitant]
  4. FISH OIL [Concomitant]
     Active Substance: FISH OIL
  5. MULTIVITAMIN [Concomitant]
     Active Substance: VITAMINS
  6. VIBERZI [Concomitant]
     Active Substance: ELUXADOLINE
  7. LAMOTRIGINE. [Concomitant]
     Active Substance: LAMOTRIGINE
  8. VITAMIN C [Concomitant]
     Active Substance: ASCORBIC ACID
  9. VITAMIN D [Concomitant]
     Active Substance: VITAMIN D NOS
  10. RANITIDINE. [Concomitant]
     Active Substance: RANITIDINE

REACTIONS (14)
  - Feeling abnormal [None]
  - Bipolar II disorder [None]
  - Depression [None]
  - Obsessive-compulsive disorder [None]
  - Impaired quality of life [None]
  - Decreased interest [None]
  - Fibromyalgia [None]
  - Emotional distress [None]
  - Mania [None]
  - Pain [None]
  - Somnolence [None]
  - Ligament rupture [None]
  - Anxiety [None]
  - Impaired work ability [None]

NARRATIVE: CASE EVENT DATE: 20170516
